FAERS Safety Report 19874643 (Version 1)
Quarter: 2021Q3

REPORT INFORMATION
  Report Type: Spontaneous
  Country: DE (occurrence: DE)
  Receive Date: 20210923
  Receipt Date: 20210923
  Transmission Date: 20211014
  Serious: Yes (Hospitalization)
  Sender: FDA-Public Use
  Company Number: DE-MYLANLABS-2021M1063947

PATIENT
  Age: 10 Year
  Sex: Male
  Weight: 31 kg

DRUGS (1)
  1. METHYLPHENIDATE. [Suspect]
     Active Substance: METHYLPHENIDATE
     Indication: ATTENTION DEFICIT HYPERACTIVITY DISORDER
     Dosage: DAILY DOSE: 36 MG MILLGRAM(S) EVERY DAYS
     Route: 048

REACTIONS (3)
  - Abdominal pain [Recovered/Resolved]
  - Product substitution issue [Recovered/Resolved]
  - Product residue present [Recovered/Resolved]

NARRATIVE: CASE EVENT DATE: 20201102
